FAERS Safety Report 24192763 (Version 1)
Quarter: 2024Q3

REPORT INFORMATION
  Report Type: Report from Study
  Country: AU (occurrence: None)
  Receive Date: 20240809
  Receipt Date: 20240809
  Transmission Date: 20241017
  Serious: Yes (Other)
  Sender: ASTRAZENECA
  Company Number: 2021A026663

PATIENT
  Sex: Female

DRUGS (2)
  1. FASENRA [Suspect]
     Active Substance: BENRALIZUMAB
     Indication: Asthma
     Route: 058
     Dates: start: 20201009
  2. CORTISONE [Concomitant]
     Active Substance: CORTISONE

REACTIONS (9)
  - Renal cyst [Unknown]
  - Arthropathy [Unknown]
  - Hiatus hernia [Unknown]
  - Rheumatoid arthritis [Unknown]
  - Mobility decreased [Unknown]
  - Weight increased [Unknown]
  - Haemosiderin stain [Unknown]
  - Arthritis [Unknown]
  - Eye disorder [Unknown]
